FAERS Safety Report 25369160 (Version 1)
Quarter: 2025Q2

REPORT INFORMATION
  Report Type: Report from Study
  Country: BR (occurrence: None)
  Receive Date: 20250528
  Receipt Date: 20250528
  Transmission Date: 20250716
  Serious: Yes (Other)
  Sender: ENCUBE ETHICALS
  Company Number: BR-Encube-001867

PATIENT
  Sex: Female

DRUGS (1)
  1. KETOCONAZOLE [Suspect]
     Active Substance: KETOCONAZOLE
     Indication: Precocious puberty
     Dosage: 8 MG/KG/DAY

REACTIONS (2)
  - Adrenal insufficiency [Unknown]
  - Off label use [Unknown]
